FAERS Safety Report 16472715 (Version 3)
Quarter: 2019Q4

REPORT INFORMATION
  Report Type: Spontaneous
  Country: US (occurrence: US)
  Receive Date: 20190625
  Receipt Date: 20191011
  Transmission Date: 20200122
  Serious: No
  Sender: FDA-Public Use
  Company Number: US-BIOGEN-2019BI00753900

PATIENT
  Sex: Female

DRUGS (1)
  1. TYSABRI [Suspect]
     Active Substance: NATALIZUMAB
     Indication: MULTIPLE SCLEROSIS
     Route: 042
     Dates: start: 20190617

REACTIONS (7)
  - Headache [Unknown]
  - Intervertebral disc injury [Not Recovered/Not Resolved]
  - Feeling abnormal [Unknown]
  - Nausea [Unknown]
  - Arthralgia [Not Recovered/Not Resolved]
  - Fatigue [Not Recovered/Not Resolved]
  - Pruritus [Unknown]
